FAERS Safety Report 13086163 (Version 2)
Quarter: 2017Q1

REPORT INFORMATION
  Report Type: Spontaneous
  Country: IT (occurrence: IT)
  Receive Date: 20170104
  Receipt Date: 20170116
  Transmission Date: 20170428
  Serious: Yes (Hospitalization)
  Sender: FDA-Public Use
  Company Number: IT-MYLANLABS-2016M1058976

PATIENT

DRUGS (1)
  1. CIPROFLOXACIN. [Suspect]
     Active Substance: CIPROFLOXACIN
     Indication: URINARY TRACT INFECTION

REACTIONS (4)
  - Skin toxicity [Recovered/Resolved]
  - Pleural effusion [Recovered/Resolved]
  - Eosinophilia [Recovered/Resolved]
  - Lung infiltration [Recovered/Resolved]
